FAERS Safety Report 24720322 (Version 2)
Quarter: 2024Q4

REPORT INFORMATION
  Report Type: Spontaneous
  Country: CN (occurrence: CN)
  Receive Date: 20241211
  Receipt Date: 20241211
  Transmission Date: 20250115
  Serious: Yes (Life-Threatening)
  Sender: Jiangsu Hengrui Pharmaceuticals
  Company Number: CN-JIANGSU HENGRUI PHARMACEUTICALS CO., LTD.-H2024241451

PATIENT
  Age: 55 Year
  Weight: 61 kg

DRUGS (6)
  1. CISATRACURIUM BESYLATE [Suspect]
     Active Substance: CISATRACURIUM BESYLATE
     Indication: Cholelithiasis
     Dosage: 6 MG
  2. CISATRACURIUM BESYLATE [Suspect]
     Active Substance: CISATRACURIUM BESYLATE
     Indication: Cholecystitis acute
  3. ETOMIDATE [Concomitant]
     Active Substance: ETOMIDATE
     Indication: Cholelithiasis
     Dosage: 16 MG
  4. ETOMIDATE [Concomitant]
     Active Substance: ETOMIDATE
     Indication: Cholecystitis acute
  5. SUFENTANIL CITRATE [Concomitant]
     Active Substance: SUFENTANIL CITRATE
     Indication: Cholelithiasis
     Dosage: 15 UG
  6. SUFENTANIL CITRATE [Concomitant]
     Active Substance: SUFENTANIL CITRATE
     Indication: Cholecystitis acute

REACTIONS (1)
  - Arrhythmia [Recovering/Resolving]
